FAERS Safety Report 6181100-5 (Version None)
Quarter: 2009Q2

REPORT INFORMATION
  Report Type: 
  Country: None (occurrence: None)
  Receive Date: 20090501
  Receipt Date: 20090217
  Transmission Date: 20091009
  Serious: Yes (Other)
  Sender: FDA-Public Use
  Company Number: US025472

PATIENT
  Age: 78 Year
  Sex: Female
  Weight: 77 kg

DRUGS (3)
  1. TREANDA [Suspect]
     Indication: CHRONIC LYMPHOCYTIC LEUKAEMIA
     Dosage: (ONCE) , INTRAVENOUS
     Route: 042
     Dates: start: 20090207, end: 20090207
  2. TREANDA [Suspect]
     Indication: LYMPHOMA
     Dosage: (ONCE) , INTRAVENOUS
     Route: 042
     Dates: start: 20090207, end: 20090207
  3. RITUXAN [Concomitant]

REACTIONS (3)
  - PLATELET COUNT DECREASED [None]
  - RASH ERYTHEMATOUS [None]
  - RASH PRURITIC [None]
